FAERS Safety Report 20542121 (Version 2)
Quarter: 2022Q1

REPORT INFORMATION
  Report Type: Report from Study
  Country: MX (occurrence: MX)
  Receive Date: 20220302
  Receipt Date: 20220311
  Transmission Date: 20220424
  Serious: Yes (Other)
  Sender: FDA-Public Use
  Company Number: MX-TAKEDA-2021TUS009273

PATIENT
  Age: 2 Year
  Sex: Male

DRUGS (4)
  1. IDURSULFASE [Suspect]
     Active Substance: IDURSULFASE
     Indication: Mucopolysaccharidosis II
     Dosage: UNK UNK, 1/WEEK
     Route: 042
  2. IDURSULFASE [Suspect]
     Active Substance: IDURSULFASE
     Dosage: 6 MILLIGRAM, 1/WEEK
     Route: 042
  3. ACETAMINOPHEN [Concomitant]
     Active Substance: ACETAMINOPHEN
     Dosage: 2 MILLILITER
     Route: 065
  4. DIPHENHYDRAMINE [Concomitant]
     Active Substance: DIPHENHYDRAMINE
     Dosage: 2.5 MILLILITER
     Route: 065

REACTIONS (6)
  - Pharyngeal inflammation [Recovering/Resolving]
  - COVID-19 [Recovering/Resolving]
  - Pyrexia [Recovered/Resolved]
  - Therapy interrupted [Recovering/Resolving]
  - Product dose omission issue [Recovering/Resolving]
  - Product availability issue [Recovering/Resolving]

NARRATIVE: CASE EVENT DATE: 20210208
